FAERS Safety Report 8124879-5 (Version None)
Quarter: 2012Q1

REPORT INFORMATION
  Report Type: 
  Country: None (occurrence: None)
  Receive Date: 20120209
  Receipt Date: 20120131
  Transmission Date: 20120608
  Serious: Yes (Other)
  Sender: FDA-Public Use
  Company Number: CA-JNJFOC-20120201833

PATIENT
  Sex: Female
  Weight: 79.6 kg

DRUGS (3)
  1. MESALAMINE [Concomitant]
     Route: 065
  2. IMURAN [Concomitant]
     Route: 065
  3. REMICADE [Suspect]
     Indication: COLITIS ULCERATIVE
     Route: 042
     Dates: start: 20070618

REACTIONS (2)
  - ROAD TRAFFIC ACCIDENT [None]
  - LIGAMENT DISORDER [None]
